FAERS Safety Report 5370014-6 (Version None)
Quarter: 2007Q2

REPORT INFORMATION
  Report Type: 
  Country: None (occurrence: None)
  Receive Date: 20070626
  Receipt Date: 20070614
  Transmission Date: 20071010
  Serious: Yes (Other)
  Sender: FDA-Public Use
  Company Number: CA-JNJFOC-20070603919

PATIENT
  Sex: Female
  Weight: 107 kg

DRUGS (2)
  1. REMICADE [Suspect]
     Indication: CROHN'S DISEASE
     Route: 042
     Dates: start: 20030101, end: 20070403
  2. SOLU-CORTEF [Concomitant]
     Indication: DRUG USE FOR UNKNOWN INDICATION
     Route: 042
     Dates: end: 20070403

REACTIONS (4)
  - BRONCHITIS [None]
  - CHOKING [None]
  - HEADACHE [None]
  - RIB FRACTURE [None]
